FAERS Safety Report 8948165 (Version 1)
Quarter: 2012Q4

REPORT INFORMATION
  Report Type: Spontaneous
  Country: GB (occurrence: None)
  Receive Date: 20121127
  Receipt Date: 20121127
  Transmission Date: 20130627
  Serious: Yes (Other)
  Sender: FDA-Public Use
  Company Number: 2012-19879

PATIENT
  Age: 45 Year
  Sex: Female
  Weight: 96 kg

DRUGS (3)
  1. TRAMADOL HYDROCHLORIDE [Suspect]
     Indication: PAIN RELIEF
     Route: 048
     Dates: start: 20120106, end: 20121017
  2. CITALOPRAM (CITALOPRAM) [Concomitant]
  3. DIAZEPAM (DIZEPAM) [Concomitant]

REACTIONS (1)
  - Neutropenia [None]
